FAERS Safety Report 18284597 (Version 6)
Quarter: 2023Q4

REPORT INFORMATION
  Report Type: Spontaneous
  Country: DE (occurrence: DE)
  Receive Date: 20200918
  Receipt Date: 20231222
  Transmission Date: 20240110
  Serious: Yes (Hospitalization, Other)
  Sender: FDA-Public Use
  Company Number: DE-EMA-DD-20201029-VASISTHA_P-094905

PATIENT
  Age: 75 Year
  Sex: Male

DRUGS (31)
  1. TAMSULOSIN HYDROCHLORIDE [Suspect]
     Active Substance: TAMSULOSIN HYDROCHLORIDE
     Indication: Product used for unknown indication
     Dosage: 0.4 MG, QD (0-0-1-0)
     Route: 065
  2. TORSEMIDE [Suspect]
     Active Substance: TORSEMIDE
     Indication: Product used for unknown indication
     Dosage: 10 MG, Q8H
     Route: 065
  3. TORSEMIDE [Suspect]
     Active Substance: TORSEMIDE
     Dosage: 10 MG, QD
     Route: 065
  4. TORSEMIDE [Suspect]
     Active Substance: TORSEMIDE
     Dosage: 10 MG, QD ( 5-3-0-0)
     Route: 065
  5. METFORMIN HYDROCHLORIDE [Suspect]
     Active Substance: METFORMIN HYDROCHLORIDE
     Indication: Product used for unknown indication
     Dosage: 1000 MG, QD
     Route: 065
  6. METFORMIN HYDROCHLORIDE [Suspect]
     Active Substance: METFORMIN HYDROCHLORIDE
     Indication: Product used for unknown indication
     Route: 065
  7. CARVEDILOL [Suspect]
     Active Substance: CARVEDILOL
     Indication: Product used for unknown indication
     Dosage: 12.5 MG, QD
     Route: 065
  8. RAMIPRIL [Suspect]
     Active Substance: RAMIPRIL
     Indication: Product used for unknown indication
     Dosage: 5 MG, QD
     Route: 067
  9. RAMIPRIL [Suspect]
     Active Substance: RAMIPRIL
     Indication: Product used for unknown indication
     Dosage: 5 MG, ONCE DAILY (0-0-1-0)
     Route: 067
  10. AMIODARONE HYDROCHLORIDE [Suspect]
     Active Substance: AMIODARONE HYDROCHLORIDE
     Indication: Product used for unknown indication
     Dosage: 200 MG, QD
     Route: 065
  11. FLUTICASONE PROPIONATE\SALMETEROL XINAFOATE [Suspect]
     Active Substance: FLUTICASONE PROPIONATE\SALMETEROL XINAFOATE
     Indication: Product used for unknown indication
     Dosage: NK MG, UNKNOWN FREQ. (3X)
     Route: 067
  12. FINASTERIDE [Concomitant]
     Active Substance: FINASTERIDE
     Indication: Product used for unknown indication
     Dosage: 5 MG, QD
     Route: 065
  13. FINASTERIDE [Concomitant]
     Active Substance: FINASTERIDE
     Route: 065
  14. LEVOTHYROXINE SODIUM [Concomitant]
     Active Substance: LEVOTHYROXINE SODIUM
     Indication: Product used for unknown indication
     Dosage: 100 UG, QD (1-0-0-0)
     Route: 065
  15. LEVOTHYROXINE SODIUM [Concomitant]
     Active Substance: LEVOTHYROXINE SODIUM
     Dosage: 100 ?G, ONCE DAILY (1-0-0-0)
     Route: 065
  16. MIRTAZAPINE [Concomitant]
     Active Substance: MIRTAZAPINE
     Indication: Product used for unknown indication
     Dosage: 15 MG, QD (0--0-0-0.5)
     Route: 065
  17. MIRTAZAPINE [Concomitant]
     Active Substance: MIRTAZAPINE
     Dosage: 15 MG, ONCE DAILY (0-0-0-0.5)
     Route: 065
  18. AMANTADINE [Concomitant]
     Active Substance: AMANTADINE
     Indication: Product used for unknown indication
     Dosage: 100 MG, QD
     Route: 065
  19. AMANTADINE [Concomitant]
     Active Substance: AMANTADINE
     Route: 065
  20. PRAMIPEXOLE [Concomitant]
     Active Substance: PRAMIPEXOLE
     Indication: Product used for unknown indication
     Dosage: 3.15 MG, QD (1-0-0-0)
     Route: 065
  21. PRAMIPEXOLE [Concomitant]
     Active Substance: PRAMIPEXOLE
     Dosage: 3.15 MG, ONCE DAILY ( 1-0-0-0)
     Route: 065
  22. RASAGILINE [Concomitant]
     Active Substance: RASAGILINE
     Indication: Product used for unknown indication
     Dosage: 1 MG, TID
     Route: 065
  23. RASAGILINE [Concomitant]
     Active Substance: RASAGILINE
     Dosage: 1 MG, EVERY 8 HOURS (1 MG, 3X)
     Route: 065
  24. APIXABAN [Concomitant]
     Active Substance: APIXABAN
     Indication: Product used for unknown indication
     Dosage: 5 MG, QD (1-0-1-0)
     Route: 065
  25. APIXABAN [Concomitant]
     Active Substance: APIXABAN
     Dosage: 5 MG, ONCE DAILY (1-0-1-0)
     Route: 065
  26. STEGLUJAN [Concomitant]
     Active Substance: ERTUGLIFLOZIN PIDOLATE\SITAGLIPTIN PHOSPHATE
     Indication: Product used for unknown indication
     Dosage: 5|100 MG, 1-0-0-0
     Route: 065
  27. STEGLUJAN [Concomitant]
     Active Substance: ERTUGLIFLOZIN PIDOLATE\SITAGLIPTIN PHOSPHATE
     Dosage: 5|100 MG, ONCE DAILY (1-0-0-0)
     Route: 065
  28. ALBUTEROL [Concomitant]
     Active Substance: ALBUTEROL
     Indication: Product used for unknown indication
     Dosage: NK MG, 3X
     Route: 065
  29. ALBUTEROL [Concomitant]
     Active Substance: ALBUTEROL
     Dosage: NK MG, 3X, UNKNOWN FREQ.
     Route: 065
  30. ALLOPURINOL [Concomitant]
     Active Substance: ALLOPURINOL
     Indication: Product used for unknown indication
     Dosage: 300 MG, QD (0.5-0-0-0)
     Route: 065
  31. ALLOPURINOL [Concomitant]
     Active Substance: ALLOPURINOL
     Dosage: 300 MG, ONCE DAILY (0.5-0-0-0)
     Route: 065

REACTIONS (3)
  - Bradycardia [Unknown]
  - Dyspnoea [Unknown]
  - Cardiac failure [Unknown]

NARRATIVE: CASE EVENT DATE: 20200522
